FAERS Safety Report 19693125 (Version 2)
Quarter: 2025Q4

REPORT INFORMATION
  Report Type: Spontaneous
  Country: EU (occurrence: EU)
  Receive Date: 20210813
  Receipt Date: 20251219
  Transmission Date: 20260118
  Serious: Yes (Other)
  Sender: AUROBINDO
  Company Number: EU-AUROBINDO-AUR-APL-2021-033847

PATIENT
  Age: 52 Year
  Sex: Female

DRUGS (2)
  1. LAMOTRIGINE [Suspect]
     Active Substance: LAMOTRIGINE
     Indication: Epilepsy
     Dosage: UNK
     Route: 065
  2. OXCARBAZEPINE [Suspect]
     Active Substance: OXCARBAZEPINE
     Indication: Epilepsy
     Dosage: UNK
     Route: 065

REACTIONS (6)
  - Acute kidney injury [Unknown]
  - Poisoning [Unknown]
  - Nystagmus [Unknown]
  - Tachycardia [Unknown]
  - Dizziness [Unknown]
  - Ataxia [Unknown]
